FAERS Safety Report 8854507 (Version 1)
Quarter: 2012Q4

REPORT INFORMATION
  Report Type: 
  Country: BR (occurrence: BR)
  Receive Date: 20121023
  Receipt Date: 20121023
  Transmission Date: 20130627
  Serious: Yes (Other)
  Sender: FDA-Public Use
  Company Number: BR-PFIZER INC-2012260795

PATIENT
  Age: 65 Year
  Sex: Female
  Weight: 70 kg

DRUGS (4)
  1. LYRICA [Suspect]
     Indication: SPINAL PAIN
     Dosage: 75 mg, 1x/day
     Route: 048
     Dates: start: 20110726
  2. LYRICA [Suspect]
     Indication: PAIN IN EXTREMITY
  3. APLAUSE [Concomitant]
     Indication: MENOPAUSAL SYMPTOMS
     Dosage: 1 tablet, 2x/day
  4. BROMAZEPAM [Concomitant]
     Indication: NERVOUS SYSTEM DISORDER
     Dosage: 1 tablet 1x/day

REACTIONS (5)
  - Osteoporosis [Not Recovered/Not Resolved]
  - Intervertebral disc protrusion [Not Recovered/Not Resolved]
  - Spinal pain [Unknown]
  - Muscle spasms [Unknown]
  - Pain in extremity [Unknown]
